FAERS Safety Report 7101071-4 (Version None)
Quarter: 2010Q4

REPORT INFORMATION
  Report Type: 
  Country: None (occurrence: None)
  Receive Date: 20101113
  Receipt Date: 20100423
  Transmission Date: 20110411
  Serious: No
  Sender: FDA-Public Use
  Company Number: US-ALLERGAN-1005382US

PATIENT
  Age: 29 Year
  Sex: Male

DRUGS (1)
  1. BOTOXA? [Suspect]
     Indication: HYPERHIDROSIS
     Dosage: 160 UNITS, SINGLE
     Route: 023
     Dates: start: 20100330, end: 20100330

REACTIONS (6)
  - ANXIETY [None]
  - DISTURBANCE IN ATTENTION [None]
  - DIZZINESS [None]
  - DRY MOUTH [None]
  - HYPERHIDROSIS [None]
  - MUSCULAR WEAKNESS [None]
